FAERS Safety Report 20814842 (Version 2)
Quarter: 2022Q2

REPORT INFORMATION
  Report Type: Spontaneous
  Country: US (occurrence: US)
  Receive Date: 20220511
  Receipt Date: 20220615
  Transmission Date: 20220721
  Serious: Yes (Hospitalization, Other)
  Sender: FDA-Public Use
  Company Number: US-INCYTE CORPORATION-2022IN004508

PATIENT

DRUGS (6)
  1. JAKAFI [Suspect]
     Active Substance: RUXOLITINIB
     Indication: Myelofibrosis
     Dosage: 10 MILLIGRAM, BID
     Route: 048
     Dates: start: 20220330, end: 20220415
  2. JAKAFI [Suspect]
     Active Substance: RUXOLITINIB
     Dosage: 5 MILLIGRAM, BID
     Route: 048
     Dates: start: 20220420
  3. PELABRESIB MONOHYDRATE [Suspect]
     Active Substance: PELABRESIB MONOHYDRATE
     Indication: Myelofibrosis
     Dosage: UNK
     Route: 065
     Dates: start: 20220330, end: 20220415
  4. PELABRESIB MONOHYDRATE [Suspect]
     Active Substance: PELABRESIB MONOHYDRATE
     Dosage: 75 MILLIGRAM
     Route: 065
     Dates: start: 20220420
  5. FISH OIL [Concomitant]
     Active Substance: FISH OIL
     Indication: Product used for unknown indication
     Dosage: UNK
     Route: 065
     Dates: start: 20000107
  6. ATENOLOL [Concomitant]
     Active Substance: ATENOLOL
     Indication: Product used for unknown indication
     Dosage: UNK
     Route: 065
     Dates: start: 19850207

REACTIONS (11)
  - Anaemia [Recovered/Resolved]
  - Loss of consciousness [Recovered/Resolved]
  - Thrombocytopenia [Unknown]
  - Upper respiratory tract infection [Unknown]
  - Red blood cell count abnormal [Unknown]
  - Haematocrit abnormal [Unknown]
  - Red cell distribution width abnormal [Unknown]
  - Lymphocyte count abnormal [Unknown]
  - Granulocytes abnormal [Unknown]
  - Chest pain [Unknown]
  - Bundle branch block right [Unknown]

NARRATIVE: CASE EVENT DATE: 20220415
